FAERS Safety Report 10420086 (Version 1)
Quarter: 2014Q3

REPORT INFORMATION
  Report Type: Spontaneous
  Country: GB (occurrence: None)
  Receive Date: 20140828
  Receipt Date: 20140828
  Transmission Date: 20150326
  Serious: Yes (Other)
  Sender: FDA-Public Use
  Company Number: 228197

PATIENT
  Age: 21 Year
  Sex: Female
  Weight: 85 kg

DRUGS (1)
  1. PICATO [Suspect]
     Active Substance: INGENOL MEBUTATE
     Indication: ACTINIC KERATOSIS
     Route: 061
     Dates: start: 20140528, end: 20140605

REACTIONS (5)
  - Depression [None]
  - Application site scar [None]
  - Application site ulcer [None]
  - Anxiety [None]
  - Trigeminal nerve disorder [None]

NARRATIVE: CASE EVENT DATE: 20140528
